FAERS Safety Report 19246075 (Version 1)
Quarter: 2021Q2

REPORT INFORMATION
  Report Type: Report from Study
  Country: MX (occurrence: MX)
  Receive Date: 20210512
  Receipt Date: 20210512
  Transmission Date: 20210717
  Serious: Yes (Other)
  Sender: FDA-Public Use
  Company Number: NVSC2021MX100134

PATIENT
  Age: 58 Year
  Sex: Female
  Weight: 80 kg

DRUGS (8)
  1. CLONAZEPAM. [Concomitant]
     Active Substance: CLONAZEPAM
     Indication: BIPOLAR DISORDER
  2. QUETIAPINE. [Concomitant]
     Active Substance: QUETIAPINE
     Indication: BIPOLAR DISORDER
     Dosage: 0.25 MG, QD (AT NIGHT)
     Route: 048
     Dates: start: 20210427
  3. VYTORIN [Concomitant]
     Active Substance: EZETIMIBE\SIMVASTATIN
     Indication: BLOOD CHOLESTEROL INCREASED
     Dosage: 1 DF, QD (10/20 MG)
     Route: 048
     Dates: start: 20210427
  4. VYTORIN [Concomitant]
     Active Substance: EZETIMIBE\SIMVASTATIN
     Indication: BLOOD TRIGLYCERIDES INCREASED
  5. CLONAZEPAM. [Concomitant]
     Active Substance: CLONAZEPAM
     Indication: ANXIETY
     Dosage: 1 DF, AT NIGHT (10 YEARS AGO)
     Route: 048
  6. DIOVAN [Suspect]
     Active Substance: VALSARTAN
     Indication: HYPERTENSION
     Dosage: 1 DF, QD (AT NIGHT)
     Route: 048
     Dates: start: 20210419
  7. CO?DIOVAN [Suspect]
     Active Substance: HYDROCHLOROTHIAZIDE\VALSARTAN
     Indication: HYPERTENSION
     Dosage: 1 DF, QD
     Route: 048
     Dates: start: 2011
  8. QUETIAPINE. [Concomitant]
     Active Substance: QUETIAPINE
     Indication: ANXIETY
     Dosage: 0.25 MG, BID(0.25 MG IN THE MORNING AND 0.25 AT NIGHT)
     Route: 048

REACTIONS (5)
  - Urinary tract infection [Not Recovered/Not Resolved]
  - Product dose omission issue [Unknown]
  - Urinary tract infection [Recovered/Resolved]
  - Blood pressure increased [Recovered/Resolved]
  - Conversion disorder [Recovered/Resolved]

NARRATIVE: CASE EVENT DATE: 20210417
